FAERS Safety Report 16051075 (Version 1)
Quarter: 2019Q2

REPORT INFORMATION
  Report Type: Spontaneous
  Country: US (occurrence: US)
  Receive Date: 20190307
  Receipt Date: 20190307
  Transmission Date: 20190711
  Serious: Yes (Other)
  Sender: FDA-Public Use
  Company Number: None

PATIENT
  Age: 33 Year
  Sex: Female
  Weight: 104.4 kg

DRUGS (2)
  1. HEMPTRANCE NATURAL CBD GUMMIES [Suspect]
     Active Substance: CANNABIDIOL\HERBALS
     Indication: STRESS
     Dosage: ?          QUANTITY:1 GUMMIE;?
     Route: 048
     Dates: start: 20190303, end: 20190305
  2. HEMPTRANCE NATURAL CBD GUMMIES [Suspect]
     Active Substance: CANNABIDIOL\HERBALS
     Indication: ANXIETY
     Dosage: ?          QUANTITY:1 GUMMIE;?
     Route: 048
     Dates: start: 20190303, end: 20190305

REACTIONS (4)
  - Hallucination [None]
  - Euphoric mood [None]
  - Paranoia [None]
  - Anxiety [None]

NARRATIVE: CASE EVENT DATE: 20190306
